FAERS Safety Report 16201521 (Version 1)
Quarter: 2019Q2

REPORT INFORMATION
  Report Type: Spontaneous
  Country: US (occurrence: US)
  Receive Date: 20190416
  Receipt Date: 20190416
  Transmission Date: 20190711
  Serious: No
  Sender: FDA-Public Use
  Company Number: US-LEO PHARMA-318003

PATIENT
  Sex: Female

DRUGS (1)
  1. PICATO [Suspect]
     Active Substance: INGENOL MEBUTATE
     Indication: PRODUCT USED FOR UNKNOWN INDICATION
     Dosage: TO FACE (SMALL PART OF TEMPLE, FOREHEAD AND CHEEK)
     Route: 061

REACTIONS (2)
  - Incorrect product administration duration [Unknown]
  - Application site vesicles [Unknown]
